FAERS Safety Report 18890693 (Version 5)
Quarter: 2022Q3

REPORT INFORMATION
  Report Type: Spontaneous
  Country: NL (occurrence: NL)
  Receive Date: 20210215
  Receipt Date: 20220912
  Transmission Date: 20221027
  Serious: Yes (Other)
  Sender: FDA-Public Use
  Company Number: NL-JNJFOC-20210221781

PATIENT
  Sex: Female

DRUGS (2)
  1. RISPERDAL [Suspect]
     Active Substance: RISPERIDONE
     Indication: Schizophrenia
     Route: 065
     Dates: start: 2015
  2. RISPERDAL [Suspect]
     Active Substance: RISPERIDONE
     Route: 065
     Dates: start: 201308

REACTIONS (9)
  - Acromegaly [Unknown]
  - Delirium [Unknown]
  - Hyperprolactinaemia [Unknown]
  - Thyroid mass [Unknown]
  - Agitation [Unknown]
  - Depression [Unknown]
  - Cognitive disorder [Unknown]
  - Drug ineffective [Unknown]
  - Movement disorder [Unknown]
